FAERS Safety Report 5584756-0 (Version None)
Quarter: 2008Q1

REPORT INFORMATION
  Report Type: 
  Country: None (occurrence: None)
  Receive Date: 20080103
  Receipt Date: 20071219
  Transmission Date: 20080703
  Serious: Yes (Other)
  Sender: FDA-Public Use
  Company Number: TCI2007A06538

PATIENT
  Age: 69 Year
  Sex: Female

DRUGS (5)
  1. ACTOS [Suspect]
     Indication: DIABETES MELLITUS
     Dosage: 15 MG (15 MG, 1 IN 1 D) PER ORAL, 30 MG (30 MG, 1 IN 1 D) PER ORAL
     Route: 048
     Dates: start: 20050726, end: 20070506
  2. ACTOS [Suspect]
     Indication: DIABETES MELLITUS
     Dosage: 15 MG (15 MG, 1 IN 1 D) PER ORAL, 30 MG (30 MG, 1 IN 1 D) PER ORAL
     Route: 048
     Dates: start: 20070507, end: 20071127
  3. OLMETEC (OLMESARTAN MEDOXOMIL) [Concomitant]
  4. YOULACTONE (SPIRONOLACTONE) [Concomitant]
  5. NIVADIL (NILVADIPINE) [Concomitant]

REACTIONS (5)
  - APLASTIC ANAEMIA [None]
  - FACE OEDEMA [None]
  - MALAISE [None]
  - OEDEMA PERIPHERAL [None]
  - PANCYTOPENIA [None]
